FAERS Safety Report 4826806-2 (Version None)
Quarter: 2005Q4

REPORT INFORMATION
  Report Type: 
  Country: None (occurrence: None)
  Receive Date: 20051014
  Receipt Date: 20050622
  Transmission Date: 20060501
  Serious: No
  Sender: FDA-Public Use
  Company Number: 2005SP001549

PATIENT
  Age: 60 Year
  Sex: Female
  Weight: 95.2554 kg

DRUGS (11)
  1. LUNESTA [Suspect]
     Indication: INSOMNIA
     Dosage: HS;ORAL
     Route: 048
     Dates: start: 20050401, end: 20050401
  2. PREVACID [Concomitant]
  3. AMARYL [Concomitant]
  4. LORATADINE [Concomitant]
  5. GLUCOPHAGE [Concomitant]
  6. VALSARTAN [Concomitant]
  7. TEGASEROD [Concomitant]
  8. CLONIPRAMINE [Concomitant]
  9. HYDROCHLOROTHIAZIDE [Concomitant]
  10. CLONOPIN [Concomitant]
  11. AMBIEN [Concomitant]

REACTIONS (3)
  - DRUG INEFFECTIVE [None]
  - DYSGEUSIA [None]
  - INITIAL INSOMNIA [None]
